FAERS Safety Report 19489437 (Version 1)
Quarter: 2021Q3

REPORT INFORMATION
  Report Type: Report from Study
  Country: GB (occurrence: GB)
  Receive Date: 20210703
  Receipt Date: 20210703
  Transmission Date: 20211014
  Serious: Yes (Disabling)
  Sender: FDA-Public Use
  Company Number: GB-TEVA-2021-GB-1917754

PATIENT
  Sex: Male

DRUGS (1)
  1. OLATUTON [Suspect]
     Active Substance: OCTREOTIDE
     Dosage: DATE OF LAST ADMINISTRATION 31?MAR?2021
     Route: 065

REACTIONS (4)
  - Sciatic nerve injury [Not Recovered/Not Resolved]
  - Gait disturbance [Recovering/Resolving]
  - Abdominal pain upper [Recovering/Resolving]
  - Nerve compression [Recovering/Resolving]
